FAERS Safety Report 5610334-0 (Version None)
Quarter: 2008Q1

REPORT INFORMATION
  Report Type: 
  Country: None (occurrence: None)
  Receive Date: 20080131
  Receipt Date: 20080115
  Transmission Date: 20080703
  Serious: Yes (Other)
  Sender: FDA-Public Use
  Company Number: US-GILEAD-2008-0014987

PATIENT
  Sex: Female
  Weight: 81.72 kg

DRUGS (11)
  1. LETAIRIS [Suspect]
     Indication: PULMONARY HYPERTENSION
     Route: 048
     Dates: start: 20070801
  2. REVATIO [Concomitant]
     Indication: PULMONARY HYPERTENSION
     Route: 048
  3. COUMADIN [Concomitant]
     Indication: ANTICOAGULANT THERAPY
     Route: 048
  4. LANOXIN [Concomitant]
     Indication: ESSENTIAL HYPERTENSION
     Route: 048
  5. CARDIZEM [Concomitant]
     Indication: ESSENTIAL HYPERTENSION
     Route: 048
  6. PREDNISONE TAB [Concomitant]
     Indication: PULMONARY HYPERTENSION
     Route: 048
  7. PLAQUENIL [Concomitant]
     Indication: SYSTEMIC LUPUS ERYTHEMATOSUS
     Route: 048
  8. ALDACTONE [Concomitant]
     Indication: PULMONARY HYPERTENSION
     Route: 048
  9. ALDACTONE [Concomitant]
     Indication: ASTHMA
  10. ADVAIR DISKUS 100/50 [Concomitant]
     Indication: ASTHMA
     Dosage: 250/50
     Route: 055
  11. ACIPHEX [Concomitant]
     Indication: GASTROOESOPHAGEAL REFLUX DISEASE
     Route: 048

REACTIONS (1)
  - OEDEMA PERIPHERAL [None]
